FAERS Safety Report 5397030-2 (Version None)
Quarter: 2007Q3

REPORT INFORMATION
  Report Type: 
  Country: None (occurrence: None)
  Receive Date: 20070725
  Receipt Date: 20070712
  Transmission Date: 20080115
  Serious: Yes (Hospitalization, Other)
  Sender: FDA-Public Use
  Company Number: US-SHR-US-2006-012153

PATIENT
  Age: 59 Year
  Sex: Female
  Weight: 136 kg

DRUGS (4)
  1. BETASERON [Suspect]
     Indication: RELAPSING-REMITTING MULTIPLE SCLEROSIS
     Dosage: 8 MIU, EVERY 2D
     Route: 058
     Dates: start: 19941010, end: 20060507
  2. INDAPAMIDE [Concomitant]
     Dosage: 20 MG, 1X/DAY
     Route: 048
  3. LISINOPRIL [Concomitant]
     Dosage: 10 MG, 1X/DAY
     Route: 048
  4. OMEPRAZOLE [Concomitant]
     Dosage: 20 MG, 1X/DAY
     Route: 048

REACTIONS (8)
  - BREAST CANCER [None]
  - CELLULITIS [None]
  - KNEE OPERATION [None]
  - POST PROCEDURAL DRAINAGE [None]
  - PROCEDURAL COMPLICATION [None]
  - RED BLOOD CELL COUNT DECREASED [None]
  - THERMAL BURN [None]
  - WHITE BLOOD CELL COUNT DECREASED [None]
